FAERS Safety Report 20490624 (Version 3)
Quarter: 2025Q1

REPORT INFORMATION
  Report Type: Spontaneous
  Country: US (occurrence: US)
  Receive Date: 20220218
  Receipt Date: 20250210
  Transmission Date: 20250409
  Serious: Yes (Hospitalization, Other)
  Sender: SANOFI AVENTIS
  Company Number: US-SA-SAC20220217000932

PATIENT
  Age: 53 Year
  Sex: Female
  Weight: 90.91 kg

DRUGS (20)
  1. DUPIXENT [Suspect]
     Active Substance: DUPILUMAB
     Indication: Asthma
     Dosage: 200 MG, QOW
     Route: 058
     Dates: start: 202111
  2. CLINDAMYCIN [Suspect]
     Active Substance: CLINDAMYCIN
  3. PREDNISOLONE [Concomitant]
     Active Substance: PREDNISOLONE
  4. FERROUS GLUCONATE [Concomitant]
     Active Substance: FERROUS GLUCONATE
  5. ZINC [Concomitant]
     Active Substance: ZINC
  6. SINGULAIR [Concomitant]
     Active Substance: MONTELUKAST SODIUM
  7. ALLEGRA ALLERGY [Concomitant]
     Active Substance: FEXOFENADINE HYDROCHLORIDE
  8. SINEMET [Concomitant]
     Active Substance: CARBIDOPA\LEVODOPA
  9. FLUTICASONE PROPIONATE [Concomitant]
     Active Substance: FLUTICASONE PROPIONATE
  10. ALBUTEROL\IPRATROPIUM [Concomitant]
     Active Substance: ALBUTEROL\IPRATROPIUM
  11. SYMBICORT [Concomitant]
     Active Substance: BUDESONIDE\FORMOTEROL FUMARATE DIHYDRATE
  12. SPIRIVA RESPIMAT [Concomitant]
     Active Substance: TIOTROPIUM BROMIDE
  13. ALBUTEROL SULFATE [Concomitant]
     Active Substance: ALBUTEROL SULFATE
  14. VITAMINS NOS [Concomitant]
     Active Substance: VITAMINS
  15. PROBIOTICS NOS [Concomitant]
     Active Substance: PROBIOTICS NOS
  16. AZITHROMYCIN [Concomitant]
     Active Substance: AZITHROMYCIN
  17. FERROUS GLUCONATE [Concomitant]
     Active Substance: FERROUS GLUCONATE
  18. FASENRA [Concomitant]
     Active Substance: BENRALIZUMAB
  19. VITAMINS [Concomitant]
     Active Substance: VITAMINS
  20. MELATONIN [Concomitant]
     Active Substance: MELATONIN

REACTIONS (6)
  - Bronchitis [Unknown]
  - Cough [Unknown]
  - Chest discomfort [Unknown]
  - Gastrointestinal haemorrhage [Unknown]
  - Exposure to SARS-CoV-2 [Unknown]
  - Oropharyngeal pain [Unknown]
